FAERS Safety Report 9338106 (Version 1)
Quarter: 2013Q2

REPORT INFORMATION
  Report Type: Report from Study
  Country: ES (occurrence: ES)
  Receive Date: 20130610
  Receipt Date: 20130610
  Transmission Date: 20140414
  Serious: Yes (Hospitalization, Other)
  Sender: FDA-Public Use
  Company Number: ES-ROCHE-1233721

PATIENT
  Age: 34 Year
  Sex: Male

DRUGS (5)
  1. CELLCEPT [Suspect]
     Indication: RENAL TRANSPLANT
     Route: 065
  2. CELLCEPT [Suspect]
     Route: 065
  3. VALCYTE [Suspect]
     Indication: CYTOMEGALOVIRUS INFECTION
     Route: 065
  4. VALCYTE [Suspect]
     Route: 065
  5. THYMOGLOBULIN [Concomitant]
     Route: 065

REACTIONS (2)
  - Neutropenia [Recovered/Resolved]
  - Cytomegalovirus enteritis [Recovered/Resolved]
